FAERS Safety Report 7807490-2 (Version None)
Quarter: 2011Q4

REPORT INFORMATION
  Report Type: 
  Country: None (occurrence: None)
  Receive Date: 20111011
  Receipt Date: 20111004
  Transmission Date: 20120403
  Serious: Yes (Other)
  Sender: FDA-Public Use
  Company Number: PHEH2011US04293

PATIENT
  Sex: Female
  Weight: 183 kg

DRUGS (1)
  1. RECLAST [Suspect]
     Dosage: 5 MG, UNK
     Route: 042
     Dates: start: 20101001

REACTIONS (5)
  - MALAISE [None]
  - IMMUNE SYSTEM DISORDER [None]
  - PNEUMONIA [None]
  - URINARY TRACT INFECTION [None]
  - SINUSITIS [None]
